FAERS Safety Report 7519058-6 (Version None)
Quarter: 2011Q2

REPORT INFORMATION
  Report Type: 
  Country: None (occurrence: None)
  Receive Date: 20110602
  Receipt Date: 20110524
  Transmission Date: 20111010
  Serious: Yes (Hospitalization)
  Sender: FDA-Public Use
  Company Number: JP-ROCHE-680309

PATIENT
  Sex: Male

DRUGS (29)
  1. PREDNISOLONE [Suspect]
     Route: 048
     Dates: start: 20100118, end: 20100131
  2. NEORAL [Concomitant]
     Dosage: DOSE FORM: PERORAL AGENT.
     Route: 048
     Dates: end: 20091222
  3. TOWARAT-L [Concomitant]
     Dosage: DOSE FORM: SUSTAINED-RELEASE TABLET
     Route: 048
  4. PROGRAF [Concomitant]
     Dosage: DOSE FORM: PERORAL AGENT
     Route: 048
     Dates: start: 20100315, end: 20100328
  5. PREDNISOLONE [Suspect]
     Route: 048
     Dates: start: 20091229, end: 20100107
  6. PREDNISOLONE [Suspect]
     Route: 048
     Dates: start: 20100215, end: 20100228
  7. PREDNISOLONE [Suspect]
     Route: 048
     Dates: start: 20100614, end: 20100807
  8. PREDNISOLONE [Suspect]
     Route: 048
     Dates: start: 20100809, end: 20100905
  9. PREDNISOLONE [Suspect]
     Route: 048
     Dates: start: 20100911, end: 20101024
  10. ENALAPRIL MALEATE [Concomitant]
     Route: 048
  11. PROGRAF [Concomitant]
     Dosage: DOSE FORM: PERORAL AGENT
     Route: 048
     Dates: start: 20100412, end: 20110124
  12. PREDNISOLONE [Suspect]
     Route: 048
     Dates: start: 20090101, end: 20090101
  13. NEORAL [Concomitant]
     Route: 048
     Dates: start: 20091228, end: 20100101
  14. PREDNISOLONE [Suspect]
     Route: 048
     Dates: start: 20100906, end: 20100910
  15. TOCILIZUMAB [Suspect]
     Indication: JUVENILE ARTHRITIS
     Route: 041
     Dates: start: 20091207, end: 20091222
  16. PREDNISOLONE [Suspect]
     Route: 048
     Dates: start: 20100301, end: 20100425
  17. NEORAL [Concomitant]
     Route: 048
     Dates: start: 20100102, end: 20100314
  18. PREDNISOLONE [Suspect]
     Route: 048
     Dates: start: 20100201, end: 20100214
  19. PREDNISOLONE [Suspect]
     Route: 048
     Dates: start: 20100517, end: 20100613
  20. PREDNISOLONE [Suspect]
     Indication: JUVENILE ARTHRITIS
     Route: 048
     Dates: end: 20090101
  21. LANSOPRAZOLE [Concomitant]
     Route: 048
  22. URSO 250 [Concomitant]
     Dosage: DOSE FORM: PERORAL AGENT.
     Route: 048
  23. PROGRAF [Concomitant]
     Dosage: DOSE FORM: PERORAL AGENT
     Route: 048
     Dates: start: 20100329, end: 20100411
  24. SANDIMMUNE [Concomitant]
     Route: 042
     Dates: start: 20091222, end: 20091227
  25. DEXAMETHASONE [Suspect]
     Indication: JUVENILE ARTHRITIS
     Dosage: DOSE:10.0 MG PER DAY
     Route: 042
     Dates: start: 20091222, end: 20091228
  26. DEXAMETHASONE [Suspect]
     Dosage: DOSE:REDUCED TO 5.0 MG PER DAY
     Route: 042
     Dates: start: 20091229, end: 20091230
  27. PREDNISOLONE [Suspect]
     Route: 048
     Dates: start: 20100426, end: 20100516
  28. PREDNISOLONE [Suspect]
     Route: 048
     Dates: start: 20101025, end: 20101121
  29. PREDNISOLONE [Suspect]
     Route: 048
     Dates: start: 20101122, end: 20110124

REACTIONS (4)
  - OSTEOPOROSIS [None]
  - HYPERTENSIVE ENCEPHALOPATHY [None]
  - JUVENILE ARTHRITIS [None]
  - HISTIOCYTOSIS HAEMATOPHAGIC [None]
